APPROVED DRUG PRODUCT: THIORIDAZINE HYDROCHLORIDE
Active Ingredient: THIORIDAZINE HYDROCHLORIDE
Strength: 100MG
Dosage Form/Route: TABLET;ORAL
Application: A088135 | Product #001
Applicant: CHARTWELL RX SCIENCES LLC
Approved: Nov 20, 1984 | RLD: No | RS: No | Type: DISCN